FAERS Safety Report 7049999-8 (Version None)
Quarter: 2010Q4

REPORT INFORMATION
  Report Type: 
  Country: None (occurrence: None)
  Receive Date: 20101012
  Receipt Date: 20100923
  Transmission Date: 20110411
  Serious: Yes (Other)
  Sender: FDA-Public Use
  Company Number: 2010001849

PATIENT
  Age: 66 Year
  Sex: Male
  Weight: 76.6 kg

DRUGS (24)
  1. ERLOTINIB HYDROCHLORIDE [Suspect]
     Indication: NON-SMALL CELL LUNG CANCER
     Dosage: (150 MG, QD), ORAL
     Route: 048
     Dates: start: 20091015, end: 20100426
  2. ERLOTINIB HYDROCHLORIDE [Suspect]
     Indication: NON-SMALL CELL LUNG CANCER
     Dosage: (150 MG, QD), ORAL
     Route: 048
     Dates: start: 20100514
  3. CP-751-871 [Suspect]
     Indication: NON-SMALL CELL LUNG CANCER
     Dosage: (1560 MG, DAYS 1, 2 EVERY 3 WEEKS), INTRAVENOUS
     Route: 042
     Dates: start: 20091015, end: 20100408
  4. CP-751-871 [Suspect]
     Indication: NON-SMALL CELL LUNG CANCER
     Dosage: (1560 MG, DAYS 1, 2 EVERY 3 WEEKS), INTRAVENOUS
     Route: 042
     Dates: start: 20100514
  5. ATIVAN [Concomitant]
  6. NYSTATIN [Concomitant]
  7. PERIOSTAT [Concomitant]
  8. IBUPROFEN [Concomitant]
  9. NEXIUM [Concomitant]
  10. DUONEB [Concomitant]
  11. NORVASC [Concomitant]
  12. LISINOPRIL [Concomitant]
  13. ALLOPURINOL [Concomitant]
  14. ATENOLOL [Concomitant]
  15. CIMETIDINE [Concomitant]
  16. FISH OIL (FISH OIL) [Concomitant]
  17. VITAMIN D [Concomitant]
  18. GAVISCON [Concomitant]
  19. CALCIUM WITH VITAMIN D (CALCIUM WITH VITAMIN D) [Concomitant]
  20. CHLORHEXIDINE GLUCONATE [Concomitant]
  21. SALBUTAMOL (SALBUTAMOL) [Concomitant]
  22. ANUSOL (ANUSOL) [Concomitant]
  23. BENZONATATE [Concomitant]
  24. ADVAIR DISKUS (SERETIDE MITE) [Concomitant]

REACTIONS (4)
  - BUNDLE BRANCH BLOCK [None]
  - REFUSAL OF TREATMENT BY PATIENT [None]
  - SUPRAVENTRICULAR EXTRASYSTOLES [None]
  - TROPONIN INCREASED [None]
